FAERS Safety Report 8574848-6 (Version None)
Quarter: 2012Q3

REPORT INFORMATION
  Report Type: 
  Country: None (occurrence: None)
  Receive Date: 20120807
  Receipt Date: 20120802
  Transmission Date: 20120928
  Serious: Yes (Other)
  Sender: FDA-Public Use
  Company Number: US-BAYER-2012-078801

PATIENT
  Age: 37 Year
  Sex: Female

DRUGS (1)
  1. MIRENA [Suspect]
     Indication: CONTRACEPTION
     Dosage: 20 MCG/24HR, CONT
     Route: 015
     Dates: start: 20111114

REACTIONS (5)
  - PREGNANCY WITH CONTRACEPTIVE DEVICE [None]
  - AMENORRHOEA [None]
  - HYPOMENORRHOEA [None]
  - DEVICE DISLOCATION [None]
  - COMPLICATION OF DEVICE REMOVAL [None]
